FAERS Safety Report 11644398 (Version 1)
Quarter: 2015Q4

REPORT INFORMATION
  Report Type: Spontaneous
  Country: US (occurrence: None)
  Receive Date: 20151019
  Receipt Date: 20151019
  Transmission Date: 20160304
  Serious: Yes (Disabling)
  Sender: FDA-Public Use
  Company Number: None

PATIENT
  Age: 25 Year
  Sex: Female
  Weight: 56.7 kg

DRUGS (11)
  1. TRI-LEGEST FE [Concomitant]
     Active Substance: ETHINYL ESTRADIOL\NORETHINDRONE ACETATE
  2. AQUADEKS MULTIVITAMIN [Concomitant]
  3. CHOLECALCIFEROL [Concomitant]
     Active Substance: CHOLECALCIFEROL
  4. ALBUTEROL NEBULIZER SOLUTION [Concomitant]
     Active Substance: ALBUTEROL
  5. TOBRAMYCIN INHALATION POWDER [Concomitant]
     Active Substance: TOBRAMYCIN
  6. URSODIOL. [Concomitant]
     Active Substance: URSODIOL
  7. DORNASE ALFA [Concomitant]
     Active Substance: DORNASE ALFA
  8. AZITHROMYCIN [Concomitant]
     Active Substance: AZITHROMYCIN ANHYDROUS
  9. PANCREAZE MT16 [Concomitant]
  10. ORKAMBI [Suspect]
     Active Substance: IVACAFTOR\LUMACAFTOR
     Indication: CYSTIC FIBROSIS
     Route: 048
     Dates: start: 20150716, end: 20151016
  11. ALBUTEROL HFA [Concomitant]
     Active Substance: ALBUTEROL SULFATE

REACTIONS (3)
  - Chest discomfort [None]
  - Dyspnoea exertional [None]
  - Activities of daily living impaired [None]

NARRATIVE: CASE EVENT DATE: 20150717
